FAERS Safety Report 9247495 (Version 1)
Quarter: 2013Q2

REPORT INFORMATION
  Report Type: Report from Study
  Country: FR (occurrence: FR)
  Receive Date: 20130423
  Receipt Date: 20130423
  Transmission Date: 20140414
  Serious: Yes (Hospitalization)
  Sender: FDA-Public Use
  Company Number: FR-ASTELLAS-2013EU003533

PATIENT
  Age: 56 Year
  Sex: Male
  Weight: 73 kg

DRUGS (6)
  1. PROGRAF [Suspect]
     Indication: RENAL TRANSPLANT
     Dosage: 1.5 MG, BID
     Route: 048
     Dates: start: 20120818
  2. PROGRAF [Suspect]
     Indication: IMMUNOSUPPRESSION
  3. MYFORTIC [Suspect]
     Indication: IMMUNOSUPPRESSION
     Dosage: 360 MG, BID
     Route: 048
     Dates: start: 20100322
  4. MYFORTIC [Suspect]
     Indication: RENAL TRANSPLANT
  5. CORTANCYL [Suspect]
     Indication: IMMUNOSUPPRESSION
     Dosage: 30 MG, UID/QD
     Route: 048
     Dates: start: 20120820
  6. CORTANCYL [Suspect]
     Indication: RENAL TRANSPLANT

REACTIONS (2)
  - Acute coronary syndrome [Recovered/Resolved]
  - Myocarditis [Recovered/Resolved]
